FAERS Safety Report 10425633 (Version 4)
Quarter: 2014Q3

REPORT INFORMATION
  Report Type: Report from Study
  Country: CA (occurrence: CA)
  Receive Date: 20140902
  Receipt Date: 20140915
  Transmission Date: 20150326
  Serious: Yes (Other)
  Sender: FDA-Public Use
  Company Number: CA-ROCHE-1187537

PATIENT
  Age: 72 Year
  Sex: Female
  Weight: 67.1 kg

DRUGS (12)
  1. ACTEMRA [Suspect]
     Active Substance: TOCILIZUMAB
     Indication: RHEUMATOID ARTHRITIS
     Route: 042
     Dates: start: 20110804
  2. NAPROSYN [Suspect]
     Active Substance: NAPROXEN
     Indication: PRODUCT USED FOR UNKNOWN INDICATION
     Route: 065
  3. FOLIC ACID. [Concomitant]
     Active Substance: FOLIC ACID
  4. ACTEMRA [Suspect]
     Active Substance: TOCILIZUMAB
     Route: 042
     Dates: start: 20120830
  5. ACTEMRA [Suspect]
     Active Substance: TOCILIZUMAB
     Route: 042
     Dates: start: 20130704
  6. ACTEMRA [Suspect]
     Active Substance: TOCILIZUMAB
     Route: 042
     Dates: start: 20140703
  7. ACTEMRA [Suspect]
     Active Substance: TOCILIZUMAB
     Route: 042
     Dates: start: 20140605
  8. SULFASALAZINE. [Concomitant]
     Active Substance: SULFASALAZINE
  9. VITAMIN C [Concomitant]
     Active Substance: ASCORBIC ACID
  10. HYDROCHLOROTHIAZIDE. [Concomitant]
     Active Substance: HYDROCHLOROTHIAZIDE
  11. ACTEMRA [Suspect]
     Active Substance: TOCILIZUMAB
     Route: 065
     Dates: start: 20140828
  12. METHOTREXATE [Concomitant]
     Active Substance: METHOTREXATE

REACTIONS (13)
  - Contusion [Recovered/Resolved]
  - Epistaxis [Recovered/Resolved]
  - Hypertension [Unknown]
  - Blood pressure increased [Unknown]
  - Hypoaesthesia [Not Recovered/Not Resolved]
  - Heart rate decreased [Unknown]
  - Herpes zoster [Recovering/Resolving]
  - Respiratory rate increased [Unknown]
  - Skin abrasion [Recovered/Resolved]
  - Arthropod sting [Unknown]
  - Carpal tunnel syndrome [Unknown]
  - Fall [Unknown]
  - Peripheral swelling [Unknown]

NARRATIVE: CASE EVENT DATE: 201301
